FAERS Safety Report 16668044 (Version 1)
Quarter: 2019Q3

REPORT INFORMATION
  Report Type: Spontaneous
  Country: FR (occurrence: FR)
  Receive Date: 20190805
  Receipt Date: 20190805
  Transmission Date: 20191004
  Serious: Yes (Other)
  Sender: FDA-Public Use
  Company Number: FR-JNJFOC-20190742211

PATIENT
  Age: 43 Year
  Sex: Male

DRUGS (1)
  1. SPORANOX [Suspect]
     Active Substance: ITRACONAZOLE
     Indication: BRONCHOPULMONARY ASPERGILLOSIS
     Dosage: DRUG DISCONTINUED IN BETWEEN 2012-2015.
     Route: 065
     Dates: start: 2001

REACTIONS (3)
  - Product use in unapproved indication [Unknown]
  - Prostatic adenoma [Unknown]
  - Off label use [Unknown]

NARRATIVE: CASE EVENT DATE: 2001
